FAERS Safety Report 5441687-4 (Version None)
Quarter: 2007Q3

REPORT INFORMATION
  Report Type: 
  Country: None (occurrence: None)
  Receive Date: 20070829
  Receipt Date: 20070816
  Transmission Date: 20080115
  Serious: Yes (Death, Hospitalization)
  Sender: FDA-Public Use
  Company Number: 100#03#2007-03106

PATIENT
  Age: 84 Year
  Sex: Female

DRUGS (6)
  1. SERTRALINE [Suspect]
     Indication: DRUG USE FOR UNKNOWN INDICATION
     Dosage: 50 MG; 100 MG
     Dates: start: 19930219, end: 19930414
  2. SERTRALINE [Suspect]
     Indication: DRUG USE FOR UNKNOWN INDICATION
     Dosage: 50 MG; 100 MG
     Dates: start: 19930222
  3. AMITRIPTLINE HCL [Concomitant]
  4. HALOPERIDOL [Concomitant]
  5. SINEMET PLUS (SINEMET) (LEVODOPA, CARBIDOPA) [Concomitant]
  6. ANTIBIOTICS (ANTIBIOTICS) (ANTIBIOTICS) [Concomitant]

REACTIONS (6)
  - CHOLESTASIS [None]
  - GENERAL PHYSICAL HEALTH DETERIORATION [None]
  - HEPATIC NECROSIS [None]
  - HEPATOCELLULAR DAMAGE [None]
  - NO THERAPEUTIC RESPONSE [None]
  - RESPIRATORY TRACT INFECTION [None]
